FAERS Safety Report 21994355 (Version 1)
Quarter: 2023Q1

REPORT INFORMATION
  Report Type: Spontaneous
  Country: IT (occurrence: IT)
  Receive Date: 20230215
  Receipt Date: 20230215
  Transmission Date: 20230418
  Serious: Yes (Hospitalization, Other)
  Sender: FDA-Public Use
  Company Number: IT-002147023-NVSC2023IT025373

PATIENT
  Sex: Female

DRUGS (23)
  1. CYCLOSPORINE [Suspect]
     Active Substance: CYCLOSPORINE
     Indication: Juvenile idiopathic arthritis
     Dosage: 60 MG, BID
     Route: 042
  2. CYCLOSPORINE [Suspect]
     Active Substance: CYCLOSPORINE
     Indication: Staphylococcal sepsis
  3. CEFTRIAXONE [Suspect]
     Active Substance: CEFTRIAXONE
     Indication: Product used for unknown indication
     Dosage: UNK
     Route: 065
  4. CANAKINUMAB [Suspect]
     Active Substance: CANAKINUMAB
     Indication: Product used for unknown indication
     Dosage: 150 MG (EVERY 4 WEEKS)
     Route: 058
     Dates: start: 20210726
  5. CANAKINUMAB [Suspect]
     Active Substance: CANAKINUMAB
     Dosage: 150 MG (EVERY 3 WEEKS)
     Route: 065
     Dates: start: 202204
  6. CANAKINUMAB [Suspect]
     Active Substance: CANAKINUMAB
     Dosage: 150 MG
     Route: 058
     Dates: start: 20220409
  7. TOCILIZUMAB [Suspect]
     Active Substance: TOCILIZUMAB
     Indication: Product used for unknown indication
     Dosage: 12 MG/KG (EVERY 2 WEEKS)
     Route: 042
     Dates: start: 2018
  8. ANAKINRA [Suspect]
     Active Substance: ANAKINRA
     Indication: Abdominal pain
     Dosage: 1.7 MG/KG
     Route: 065
  9. ANAKINRA [Suspect]
     Active Substance: ANAKINRA
     Dosage: 3 MG/KG (DOSE SUBSEQUENTLY INCREASED)
     Route: 065
  10. ANAKINRA [Suspect]
     Active Substance: ANAKINRA
     Dosage: 80 MG, BID (EQUAL TO 5 MG / KG / DAY)
     Route: 065
  11. ANAKINRA [Suspect]
     Active Substance: ANAKINRA
     Dosage: 100 MG, QD (3 MG / KG / DAY)
     Route: 065
  12. ANAKINRA [Suspect]
     Active Substance: ANAKINRA
     Dosage: UNK (HIGH DOSE)
     Route: 042
  13. BARICITINIB [Suspect]
     Active Substance: BARICITINIB
     Indication: Product used for unknown indication
     Dosage: 2 MG, QD
     Route: 065
  14. BARICITINIB [Suspect]
     Active Substance: BARICITINIB
     Dosage: 4 MG, QD
     Route: 065
     Dates: start: 20220404
  15. PREDNISONE [Concomitant]
     Active Substance: PREDNISONE
     Indication: Product used for unknown indication
     Dosage: 2.5 MG, QD
     Route: 065
  16. PREDNISONE [Concomitant]
     Active Substance: PREDNISONE
     Dosage: 10 MG, QD
     Route: 065
  17. PREDNISONE [Concomitant]
     Active Substance: PREDNISONE
     Dosage: 7.5 MG
     Route: 065
     Dates: start: 202109
  18. OMEPRAZOLE [Concomitant]
     Active Substance: OMEPRAZOLE
     Indication: Product used for unknown indication
     Dosage: 40 MG, QD
     Route: 048
  19. BACTRIM [Concomitant]
     Active Substance: SULFAMETHOXAZOLE\TRIMETHOPRIM
     Indication: Product used for unknown indication
     Dosage: 80 MG, BID
     Route: 048
  20. LEUCOVORIN CALCIUM [Concomitant]
     Active Substance: LEUCOVORIN CALCIUM
     Indication: Product used for unknown indication
     Dosage: 7.5 MG, TIW
     Route: 065
  21. CALCIUM CARBONATE [Concomitant]
     Active Substance: CALCIUM CARBONATE
     Indication: Product used for unknown indication
     Dosage: 500 MG, BID
     Route: 048
  22. CHOLECALCIFEROL [Concomitant]
     Active Substance: CHOLECALCIFEROL
     Indication: Product used for unknown indication
     Dosage: 2 DRP, QD
     Route: 065
  23. NERIDRONATE SODIUM [Concomitant]
     Active Substance: NERIDRONATE SODIUM
     Indication: Product used for unknown indication
     Dosage: 90 MG (EVERY 3 MONTHS)
     Route: 065

REACTIONS (48)
  - Haematochezia [Unknown]
  - Rash erythematous [Unknown]
  - Pyrexia [Not Recovered/Not Resolved]
  - Myalgia [Unknown]
  - Arthralgia [Unknown]
  - Vomiting [Unknown]
  - Abdominal pain [Unknown]
  - Polyarthritis [Unknown]
  - Still^s disease [Unknown]
  - Meconium aspiration syndrome [Not Recovered/Not Resolved]
  - Sepsis [Unknown]
  - Cardiogenic shock [Unknown]
  - Pneumonia [Unknown]
  - Bronchiectasis [Unknown]
  - Leukopenia [Unknown]
  - Haemophagocytic lymphohistiocytosis [Unknown]
  - Staphylococcal sepsis [Unknown]
  - Spinal fracture [Unknown]
  - Chromoblastomycosis [Unknown]
  - Pyelonephritis [Unknown]
  - Pain [Unknown]
  - Condition aggravated [Unknown]
  - Torticollis [Unknown]
  - Arthritis [Unknown]
  - Skin papilloma [Unknown]
  - Clubbing [Unknown]
  - Pruritus [Unknown]
  - Obstructive sleep apnoea syndrome [Unknown]
  - Rash [Unknown]
  - Urinary tract infection [Unknown]
  - C-reactive protein increased [Unknown]
  - Lymphopenia [Unknown]
  - Sinusitis [Unknown]
  - Hypertransaminasaemia [Not Recovered/Not Resolved]
  - Blood triglycerides increased [Unknown]
  - Transaminases increased [Unknown]
  - Splenomegaly [Unknown]
  - Bronchial wall thickening [Unknown]
  - Left ventricular hypertrophy [Unknown]
  - Neck pain [Unknown]
  - Lymphadenopathy [Unknown]
  - Gastroenteritis [Unknown]
  - Inflammation [Recovering/Resolving]
  - Thyroiditis [Unknown]
  - Hypertension [Unknown]
  - Haemoglobin C disease [Unknown]
  - Drug hypersensitivity [Unknown]
  - Therapy partial responder [Unknown]

NARRATIVE: CASE EVENT DATE: 20170101
